FAERS Safety Report 15793010 (Version 3)
Quarter: 2019Q2

REPORT INFORMATION
  Report Type: Report from Study
  Country: IT (occurrence: IT)
  Receive Date: 20190107
  Receipt Date: 20190527
  Transmission Date: 20190711
  Serious: Yes (Hospitalization, Other)
  Sender: FDA-Public Use
  Company Number: IT-ROCHE-2238366

PATIENT
  Age: 46 Year
  Sex: Male

DRUGS (11)
  1. COBIMETINIB. [Suspect]
     Active Substance: COBIMETINIB
     Indication: HAIRY CELL LEUKAEMIA
     Dosage: ON 27/DEC/2018, RECEIVED THE MOST RECENT DOSE OF COBIMETINIB 40 MG.
     Route: 048
     Dates: start: 20181107
  2. AMOXICILLIN/CLAVULANIC ACID [Concomitant]
     Active Substance: AMOXICILLIN\CLAVULANIC ACID
     Indication: PYREXIA
     Route: 048
     Dates: start: 20181121, end: 20181129
  3. VEMURAFENIB. [Suspect]
     Active Substance: VEMURAFENIB
     Indication: HAIRY CELL LEUKAEMIA
     Dosage: ON 20/DEC/2018, HE RECEIVED THE MOST RECENT DOSE OF VEMURAFENIB.
     Route: 048
     Dates: start: 20181107
  4. MEROPENEM. [Concomitant]
     Active Substance: MEROPENEM
     Route: 042
     Dates: start: 20181204, end: 20181205
  5. COBIMETINIB. [Suspect]
     Active Substance: COBIMETINIB
     Route: 048
     Dates: start: 20181213
  6. VANCOMYCIN [Concomitant]
     Active Substance: VANCOMYCIN
     Indication: PYREXIA
     Route: 042
     Dates: start: 20181204, end: 20181205
  7. VEMURAFENIB. [Suspect]
     Active Substance: VEMURAFENIB
     Route: 048
     Dates: start: 20181213
  8. MEROPENEM. [Concomitant]
     Active Substance: MEROPENEM
     Route: 042
     Dates: start: 20181205, end: 20181217
  9. RABEPRAZOLE [Concomitant]
     Active Substance: RABEPRAZOLE
     Indication: GASTROINTESTINAL DISORDER PROPHYLAXIS
     Route: 048
     Dates: start: 20181130, end: 20181217
  10. VANCOMYCIN [Concomitant]
     Active Substance: VANCOMYCIN
     Route: 042
     Dates: start: 20181205, end: 20181217
  11. MEROPENEM. [Concomitant]
     Active Substance: MEROPENEM
     Indication: PYREXIA
     Route: 042
     Dates: start: 20181203, end: 20181204

REACTIONS (5)
  - Rhabdomyolysis [Recovered/Resolved]
  - Laryngitis [Not Recovered/Not Resolved]
  - Neutropenia [Not Recovered/Not Resolved]
  - Retinopathy [Recovering/Resolving]
  - Uveitis [Unknown]

NARRATIVE: CASE EVENT DATE: 20181129
